FAERS Safety Report 8355353-9 (Version None)
Quarter: 2012Q2

REPORT INFORMATION
  Report Type: 
  Country: None (occurrence: None)
  Receive Date: 20120511
  Receipt Date: 20110526
  Transmission Date: 20120825
  Serious: No
  Sender: FDA-Public Use
  Company Number: US-TEVA-2011001580

PATIENT
  Sex: Male
  Weight: 81.72 kg

DRUGS (3)
  1. NUVIGIL [Suspect]
     Route: 048
  2. NUVIGIL [Suspect]
     Indication: NARCOLEPSY
     Dosage: 150 MILLIGRAM;
     Route: 048
     Dates: start: 20110325
  3. CYMBALTA [Concomitant]

REACTIONS (3)
  - INITIAL INSOMNIA [None]
  - DRUG TOLERANCE [None]
  - PSYCHOMOTOR HYPERACTIVITY [None]
